FAERS Safety Report 7692846-1 (Version None)
Quarter: 2011Q3

REPORT INFORMATION
  Report Type: 
  Country: None (occurrence: None)
  Receive Date: 20110815
  Receipt Date: 20110808
  Transmission Date: 20111222
  Serious: Yes (Death, Hospitalization)
  Sender: FDA-Public Use
  Company Number: ALP-11-09

PATIENT
  Age: 32 Year
  Sex: Male

DRUGS (5)
  1. MDMA [Concomitant]
  2. ALPRAZOLAM [Suspect]
  3. DIAZEPAM [Concomitant]
  4. METHADONE HCL [Concomitant]
  5. METHAMPHETAMINE [Concomitant]

REACTIONS (2)
  - SEROTONIN SYNDROME [None]
  - TOXICITY TO VARIOUS AGENTS [None]
